FAERS Safety Report 24135559 (Version 8)
Quarter: 2025Q3

REPORT INFORMATION
  Report Type: Report from Study
  Country: CA (occurrence: CA)
  Receive Date: 20240725
  Receipt Date: 20250724
  Transmission Date: 20251021
  Serious: Yes (Other)
  Sender: TAKEDA
  Company Number: CA-TAKEDA-2017TUS021746

PATIENT
  Sex: Female

DRUGS (29)
  1. VEDOLIZUMAB [Suspect]
     Active Substance: VEDOLIZUMAB
     Indication: Crohn^s disease
  2. VEDOLIZUMAB [Suspect]
     Active Substance: VEDOLIZUMAB
  3. VEDOLIZUMAB [Suspect]
     Active Substance: VEDOLIZUMAB
  4. VEDOLIZUMAB [Suspect]
     Active Substance: VEDOLIZUMAB
  5. VEDOLIZUMAB [Suspect]
     Active Substance: VEDOLIZUMAB
  6. VEDOLIZUMAB [Suspect]
     Active Substance: VEDOLIZUMAB
  7. VEDOLIZUMAB [Suspect]
     Active Substance: VEDOLIZUMAB
  8. VEDOLIZUMAB [Suspect]
     Active Substance: VEDOLIZUMAB
  9. VEDOLIZUMAB [Suspect]
     Active Substance: VEDOLIZUMAB
  10. VEDOLIZUMAB [Suspect]
     Active Substance: VEDOLIZUMAB
  11. ENTOCORT [Concomitant]
     Active Substance: BUDESONIDE
  12. IMURAN [Concomitant]
     Active Substance: AZATHIOPRINE
  13. PROGESTERONE [Concomitant]
     Active Substance: PROGESTERONE
  14. CLONAZEPAM [Concomitant]
     Active Substance: CLONAZEPAM
  15. EBASTINE [Concomitant]
     Active Substance: EBASTINE
  16. VENTOLIN [Concomitant]
     Active Substance: ALBUTEROL SULFATE
  17. ATIVAN [Concomitant]
     Active Substance: LORAZEPAM
  18. DIENOGEST [Concomitant]
     Active Substance: DIENOGEST
  19. ELAVIL [Concomitant]
     Active Substance: AMITRIPTYLINE HYDROCHLORIDE
  20. PANTOPRAZOLE [Concomitant]
     Active Substance: PANTOPRAZOLE
  21. Reactine [Concomitant]
  22. VITAMIN D [Concomitant]
     Active Substance: VITAMIN D NOS
  23. Avamist [Concomitant]
  24. STRATTERA [Concomitant]
     Active Substance: ATOMOXETINE HYDROCHLORIDE
  25. BILASTINE [Concomitant]
     Active Substance: BILASTINE
  26. METHYLPHENIDATE [Concomitant]
     Active Substance: METHYLPHENIDATE
  27. INTUNIV [Concomitant]
     Active Substance: GUANFACINE HYDROCHLORIDE
  28. RYALTRIS [Concomitant]
     Active Substance: MOMETASONE FUROATE MONOHYDRATE\OLOPATADINE HYDROCHLORIDE
  29. SOLU-CORTEF [Concomitant]
     Active Substance: HYDROCORTISONE SODIUM SUCCINATE
     Indication: Premedication

REACTIONS (3)
  - Crohn^s disease [Unknown]
  - Colitis microscopic [Recovering/Resolving]
  - Drug effect less than expected [Unknown]
